FAERS Safety Report 9681158 (Version 1)
Quarter: 2013Q4

REPORT INFORMATION
  Report Type: Spontaneous
  Country: DE (occurrence: DE)
  Receive Date: 20131111
  Receipt Date: 20131111
  Transmission Date: 20140711
  Serious: Yes (Other)
  Sender: FDA-Public Use
  Company Number: DE-ASTRAZENECA-2013SE80218

PATIENT
  Sex: Female

DRUGS (1)
  1. XYLOCAINE [Suspect]
     Route: 013

REACTIONS (4)
  - Hemiparesis [Recovered/Resolved]
  - VIIth nerve paralysis [Recovered/Resolved]
  - Convulsion [Recovered/Resolved]
  - Drug administration error [Unknown]
